FAERS Safety Report 4963499-8 (Version None)
Quarter: 2006Q2

REPORT INFORMATION
  Report Type: 
  Country: None (occurrence: None)
  Receive Date: 20060404
  Receipt Date: 20060404
  Transmission Date: 20061013
  Serious: No
  Sender: FDA-Public Use
  Company Number: None

PATIENT
  Age: 28 Year
  Sex: Female
  Weight: 78.4723 kg

DRUGS (2)
  1. OXYCODONE [Suspect]
     Indication: POST-TRAUMATIC HEADACHE
     Dosage: 80 MG Q 8 HR PO
     Route: 048
     Dates: start: 20060201
  2. OXYCODONE [Suspect]
     Indication: POST-TRAUMATIC HEADACHE
     Dosage: 80 MG Q 8 HR PO
     Route: 048
     Dates: start: 20060208

REACTIONS (3)
  - DRUG INEFFECTIVE [None]
  - NAUSEA [None]
  - PHARMACEUTICAL PRODUCT COMPLAINT [None]
